FAERS Safety Report 19805538 (Version 1)
Quarter: 2021Q3

REPORT INFORMATION
  Report Type: Spontaneous
  Country: PL (occurrence: PL)
  Receive Date: 20210908
  Receipt Date: 20210908
  Transmission Date: 20211014
  Serious: Yes (Hospitalization, Other)
  Sender: FDA-Public Use
  Company Number: PL-MYLANLABS-2021M1059696

PATIENT
  Sex: Male

DRUGS (14)
  1. PANTOPRAZOLE [Suspect]
     Active Substance: PANTOPRAZOLE
     Indication: CARDIAC FAILURE
     Dosage: 40 MG
     Route: 065
  2. SACUBITRIL W/VALSARTAN [Suspect]
     Active Substance: SACUBITRIL\VALSARTAN
     Indication: CARDIAC FAILURE
     Dosage: UNK (2X 49/51 MG)
     Route: 065
     Dates: start: 201905
  3. SACUBITRIL W/VALSARTAN [Suspect]
     Active Substance: SACUBITRIL\VALSARTAN
     Dosage: UNK (2X 49/51 MG)
     Route: 065
     Dates: start: 202006
  4. TORASEMIDE [Suspect]
     Active Substance: TORSEMIDE
     Indication: CARDIAC FAILURE
     Dosage: 10 MG
     Route: 065
  5. SACUBITRIL W/VALSARTAN [Suspect]
     Active Substance: SACUBITRIL\VALSARTAN
     Dosage: UNK (2X 24/26 MG)
     Route: 065
     Dates: start: 201903
  6. WARFARIN [Suspect]
     Active Substance: WARFARIN
     Indication: CARDIAC FAILURE
     Dosage: UNK
     Route: 065
  7. METOPROLOL. [Suspect]
     Active Substance: METOPROLOL
     Indication: CARDIAC FAILURE
     Dosage: 150 MG
     Route: 065
  8. AMIODARONE [Suspect]
     Active Substance: AMIODARONE
     Indication: CARDIAC FAILURE
     Dosage: UNK
     Route: 065
     Dates: start: 201808
  9. SACUBITRIL W/VALSARTAN [Suspect]
     Active Substance: SACUBITRIL\VALSARTAN
     Dosage: UNK (2X 97/103 MG)
     Route: 065
     Dates: start: 201911
  10. ATORVASTATIN [Suspect]
     Active Substance: ATORVASTATIN
     Indication: CARDIAC FAILURE
     Dosage: 40 MG
     Route: 065
  11. BISOPROLOL [Suspect]
     Active Substance: BISOPROLOL
     Indication: CARDIAC FAILURE
     Dosage: 5 MG
     Route: 065
  12. RAMIPRIL. [Suspect]
     Active Substance: RAMIPRIL
     Indication: CARDIAC FAILURE
     Dosage: 10 MG
     Route: 065
  13. ALLOPURINOL. [Suspect]
     Active Substance: ALLOPURINOL
     Indication: CARDIAC FAILURE
     Dosage: 100 MG
     Route: 065
  14. SORBIFER                           /00023503/ [Suspect]
     Active Substance: FERROUS SULFATE
     Indication: CARDIAC FAILURE
     Dosage: UNK
     Route: 065

REACTIONS (15)
  - Peripheral arterial occlusive disease [Unknown]
  - Hypotension [Unknown]
  - Cardiac failure [Unknown]
  - Cardiac failure chronic [Unknown]
  - Ejection fraction decreased [Unknown]
  - Hyperthyroidism [Unknown]
  - Normocytic anaemia [Unknown]
  - Atrial flutter [Unknown]
  - Asthenia [Unknown]
  - Hyperkalaemia [Unknown]
  - Atrial fibrillation [Unknown]
  - Renal failure [Unknown]
  - Arrhythmia [Unknown]
  - Cardiac dysfunction [Unknown]
  - Cardiac ventricular disorder [Unknown]

NARRATIVE: CASE EVENT DATE: 202006
